FAERS Safety Report 11859998 (Version 1)
Quarter: 2015Q4

REPORT INFORMATION
  Report Type: Spontaneous
  Country: BR (occurrence: BR)
  Receive Date: 20151222
  Receipt Date: 20151222
  Transmission Date: 20160305
  Serious: Yes (Hospitalization)
  Sender: FDA-Public Use
  Company Number: BR-SA-2015SA211885

PATIENT
  Age: 38 Year
  Sex: Female

DRUGS (1)
  1. FABRAZYME [Suspect]
     Active Substance: AGALSIDASE BETA
     Indication: FABRY^S DISEASE
     Dosage: DOSE: 2 VIALS
     Route: 041
     Dates: start: 20120101

REACTIONS (2)
  - Dengue fever [Not Recovered/Not Resolved]
  - Blood pressure fluctuation [Not Recovered/Not Resolved]

NARRATIVE: CASE EVENT DATE: 20151210
